FAERS Safety Report 18373065 (Version 3)
Quarter: 2022Q1

REPORT INFORMATION
  Report Type: Spontaneous
  Country: IT (occurrence: IT)
  Receive Date: 20201012
  Receipt Date: 20220328
  Transmission Date: 20220423
  Serious: Yes (Other)
  Sender: FDA-Public Use
  Company Number: IT-ABBVIE-20K-083-3595452-00

PATIENT
  Age: 27 Year
  Sex: Male

DRUGS (7)
  1. RITONAVIR [Interacting]
     Active Substance: RITONAVIR
     Indication: COVID-19
     Route: 048
     Dates: start: 20200327, end: 20200403
  2. TACROLIMUS [Interacting]
     Active Substance: TACROLIMUS
     Indication: Immunosuppressant drug therapy
     Dosage: DOSE REDUCED
     Route: 065
     Dates: start: 201907, end: 20200327
  3. TACROLIMUS [Interacting]
     Active Substance: TACROLIMUS
     Route: 065
     Dates: start: 20200328, end: 202003
  4. TACROLIMUS [Interacting]
     Active Substance: TACROLIMUS
     Route: 065
     Dates: start: 2020
  5. DARUNAVIR [Interacting]
     Active Substance: DARUNAVIR
     Indication: COVID-19
     Route: 065
     Dates: start: 20200327, end: 20200403
  6. HYDROXYCHLOROQUINE [Suspect]
     Active Substance: HYDROXYCHLOROQUINE
     Indication: COVID-19
     Route: 065
     Dates: start: 20200327, end: 20200406
  7. PREDNISONE [Concomitant]
     Active Substance: PREDNISONE
     Indication: Immunosuppressant drug therapy
     Dates: start: 201907

REACTIONS (5)
  - Acute kidney injury [Unknown]
  - Off label use [Unknown]
  - Therapeutic response unexpected [Unknown]
  - Immunosuppressant drug level increased [Recovered/Resolved]
  - Drug interaction [Recovered/Resolved]

NARRATIVE: CASE EVENT DATE: 20200101
